FAERS Safety Report 5159449-4 (Version None)
Quarter: 2006Q4

REPORT INFORMATION
  Report Type: 
  Country: None (occurrence: None)
  Receive Date: 20061122
  Receipt Date: 20061122
  Transmission Date: 20070319
  Serious: Yes (Hospitalization)
  Sender: FDA-Public Use
  Company Number: None

PATIENT
  Sex: Male
  Weight: 73.0291 kg

DRUGS (6)
  1. FUDR [Suspect]
     Indication: OESOPHAGEAL CARCINOMA
     Dosage: 8030     1     041
     Dates: start: 20061003
  2. OXALIPLATIN [Suspect]
     Dosage: 156      1       041
     Dates: start: 20061003
  3. XANAX [Concomitant]
  4. FLOMAX [Concomitant]
  5. TENORMIN [Concomitant]
  6. XALATAN [Concomitant]

REACTIONS (5)
  - ANAEMIA [None]
  - DIARRHOEA [None]
  - FATIGUE [None]
  - NEUTROPENIA [None]
  - THROMBOCYTOPENIA [None]
